FAERS Safety Report 13963699 (Version 1)
Quarter: 2017Q3

REPORT INFORMATION
  Report Type: Spontaneous
  Country: US (occurrence: US)
  Receive Date: 20170913
  Receipt Date: 20170913
  Transmission Date: 20171128
  Serious: No
  Sender: FDA-Public Use
  Company Number: US-JNJFOC-20170718059

PATIENT
  Sex: Male
  Weight: 70.76 kg

DRUGS (1)
  1. TRAMADOL HYDROCHLORIDE. [Suspect]
     Active Substance: TRAMADOL HYDROCHLORIDE
     Indication: PAIN
     Dosage: 1-14 FOR 21 DAYS
     Route: 048

REACTIONS (3)
  - Drug ineffective [Unknown]
  - Discomfort [Unknown]
  - Insomnia [Unknown]
